FAERS Safety Report 8601009-4 (Version None)
Quarter: 2012Q3

REPORT INFORMATION
  Report Type: 
  Country: None (occurrence: None)
  Receive Date: 20120805
  Receipt Date: 20110726
  Transmission Date: 20120928
  Serious: No
  Sender: FDA-Public Use
  Company Number: CC-11-062

PATIENT
  Age: 55 Year
  Sex: Female
  Weight: 70.3075 kg

DRUGS (3)
  1. PLAVIX [Concomitant]
  2. LACTULOSE [Suspect]
     Indication: CONSTIPATION
     Dosage: 45  ML DAILY, BOUT 5 MOBNTHS
  3. NEXIUM [Concomitant]

REACTIONS (5)
  - NAUSEA [None]
  - ABDOMINAL DISCOMFORT [None]
  - PRODUCT SUBSTITUTION ISSUE [None]
  - FLATULENCE [None]
  - VOMITING [None]
